FAERS Safety Report 19462686 (Version 1)
Quarter: 2021Q2

REPORT INFORMATION
  Report Type: Report from Study
  Country: US (occurrence: US)
  Receive Date: 20210625
  Receipt Date: 20210625
  Transmission Date: 20210717
  Serious: Yes (Death)
  Sender: FDA-Public Use
  Company Number: US-PFIZER INC-2021253392

PATIENT
  Age: 53 Year
  Sex: Female

DRUGS (3)
  1. IBRANCE [Suspect]
     Active Substance: PALBOCICLIB
     Indication: BREAST CANCER
     Dosage: 125 MG, CYCLIC (ONCE DAILY 21 DAYS ON, 7 DAYS OFF)
     Route: 048
     Dates: start: 20210208, end: 202106
  2. ELIQUIS [Concomitant]
     Active Substance: APIXABAN
     Indication: THROMBOSIS
     Dosage: UNK
  3. LETROZOLE. [Concomitant]
     Active Substance: LETROZOLE
     Dosage: UNK, DAILY

REACTIONS (8)
  - Death [Fatal]
  - Neoplasm progression [Unknown]
  - Peripheral swelling [Recovered/Resolved]
  - Cough [Unknown]
  - Product dose omission in error [Unknown]
  - Dyspnoea [Recovered/Resolved]
  - Middle insomnia [Unknown]
  - Skin tightness [Recovered/Resolved]

NARRATIVE: CASE EVENT DATE: 20210315
